FAERS Safety Report 9053492 (Version 5)
Quarter: 2013Q2

REPORT INFORMATION
  Report Type: Spontaneous
  Country: US (occurrence: None)
  Receive Date: 20130117
  Receipt Date: 20130415
  Transmission Date: 20140414
  Serious: Yes (Hospitalization, Other)
  Sender: FDA-Public Use
  Company Number: 2012-003311

PATIENT
  Age: 75 Year
  Sex: Female

DRUGS (20)
  1. ACTONEL [Suspect]
     Indication: OSTEOPOROSIS
     Route: 048
     Dates: start: 20031014, end: 201104
  2. FOSAMAX (ALENDRONATE SODIUM) [Suspect]
     Indication: OSTEOPOROSIS
     Route: 048
     Dates: start: 1995, end: 2003
  3. ADVAIR (FLUTICASONE PROPIONATE, SALMETEROL XINAFOATE) [Concomitant]
  4. CLARITIN /0091750/ (LORATADINE) [Concomitant]
  5. COZAAR (LOSARTAN POASSIUM) [Concomitant]
  6. MAXZIDE (HYDROCHLOROTHIAZIDE, TRIAMTERENE) [Concomitant]
  7. VERAPAMIL (VERAPAMIL) [Concomitant]
  8. AVALIDE (HYDROCHLOROTHIAZIDE, IRBESARTAN) [Concomitant]
  9. FERROUS SULFATE (FERROUS SULFATE) [Concomitant]
  10. ASPIRIN (ACETYLSALICYLIC ACID) [Concomitant]
  11. CLOTRIMAZOLE AND BETAMETHASONE DIPROPIONATE (BETAMETHASONE DIPROPIONATE, CLOTRIMAZOLE) [Concomitant]
  12. VITAMIN C /00008001/ (ASCORBIC ACID) [Concomitant]
  13. CALCIUM (CALCIUM) [Concomitant]
  14. TYLENOL W/CODEINE NO. 3 (CODEINE PHOSPHATE, PARACETAMOL) [Concomitant]
  15. VICODIN (HYDROCODONE BITARTRATE, PARACETAMOL) [Concomitant]
  16. ALBUTEROL HFA (SALBUTAMOL) [Concomitant]
  17. FLOVENT HFA (FLUTICASONE PROPIONATE) [Concomitant]
  18. NASONEX (MOMETASONE FUROATE) [Concomitant]
  19. AVAPRO (IRBESARTAN) [Concomitant]
  20. STARLIX (NATEGLINIDE) [Concomitant]

REACTIONS (9)
  - Femur fracture [None]
  - Pathological fracture [None]
  - Stress fracture [None]
  - Low turnover osteopathy [None]
  - Bone disorder [None]
  - Multiple fractures [None]
  - Pain [None]
  - Fall [None]
  - Fracture displacement [None]
